FAERS Safety Report 4370528-1 (Version None)
Quarter: 2004Q2

REPORT INFORMATION
  Report Type: 
  Country: None (occurrence: None)
  Receive Date: 20040601
  Receipt Date: 20031104
  Transmission Date: 20050107
  Serious: Yes (Hospitalization)
  Sender: FDA-Public Use
  Company Number: US054997

PATIENT
  Age: 63 Year
  Sex: Female

DRUGS (4)
  1. ENBREL [Suspect]
     Indication: RHEUMATOID ARTHRITIS
     Dosage: 25 MG, TWICE WEEKLY, SC
     Route: 058
     Dates: start: 19991201, end: 20020401
  2. PREDNISONE [Concomitant]
  3. ALENDRONATE SODIUM [Concomitant]
  4. CONJUGATED ESTROGEN [Concomitant]

REACTIONS (1)
  - BREAST CANCER STAGE I [None]
